FAERS Safety Report 11142445 (Version 2)
Quarter: 2015Q2

REPORT INFORMATION
  Report Type: Spontaneous
  Country: RS (occurrence: RS)
  Receive Date: 20150527
  Receipt Date: 20150603
  Transmission Date: 20150821
  Serious: Yes (Other)
  Sender: FDA-Public Use
  Company Number: RS-GILEAD-2015-0154924

PATIENT
  Age: 60 Year
  Sex: Male
  Weight: 55 kg

DRUGS (4)
  1. RANOLAZINE [Suspect]
     Active Substance: RANOLAZINE
     Indication: ANGINA UNSTABLE
     Dosage: 375 MG, BID
     Route: 065
     Dates: start: 20150512, end: 20150513
  2. CONTROLOC                          /01263201/ [Concomitant]
     Dosage: UNK, QD
     Route: 065
  3. RANOLAZINE [Suspect]
     Active Substance: RANOLAZINE
     Dosage: 375 MG, BID
     Route: 065
     Dates: start: 20150515
  4. LORAZEPAM. [Concomitant]
     Active Substance: LORAZEPAM

REACTIONS (2)
  - Off label use [Not Recovered/Not Resolved]
  - Asphyxia [Recovered/Resolved]

NARRATIVE: CASE EVENT DATE: 20150512
